FAERS Safety Report 4626505-6 (Version None)
Quarter: 2005Q2

REPORT INFORMATION
  Report Type: 
  Country: None (occurrence: None)
  Receive Date: 20050404
  Receipt Date: 20041209
  Transmission Date: 20051028
  Serious: Yes (Disabling)
  Sender: FDA-Public Use
  Company Number: US-MERCK-0412USA01194

PATIENT
  Age: 73 Year
  Sex: Female

DRUGS (6)
  1. ZOCOR [Suspect]
     Indication: BLOOD CHOLESTEROL INCREASED
     Route: 048
     Dates: start: 19981201, end: 20041129
  2. ATENOLOL [Concomitant]
     Route: 065
  3. CARDIZEM CD [Concomitant]
     Route: 065
  4. ASPIRIN [Concomitant]
     Route: 065
  5. PLAVIX [Concomitant]
     Route: 065
  6. LORAZEPAM [Concomitant]
     Route: 065

REACTIONS (6)
  - ASTHENIA [None]
  - BURNING SENSATION [None]
  - CARDIAC FAILURE CONGESTIVE [None]
  - HYPOAESTHESIA [None]
  - MYALGIA [None]
  - PNEUMONIA [None]
